FAERS Safety Report 23242847 (Version 6)
Quarter: 2025Q1

REPORT INFORMATION
  Report Type: Spontaneous
  Country: US (occurrence: US)
  Receive Date: 20231129
  Receipt Date: 20250312
  Transmission Date: 20250409
  Serious: Yes (Disabling)
  Sender: SANOFI AVENTIS
  Company Number: US-SA-SAC20231124000274

PATIENT
  Age: 25 Year
  Sex: Male

DRUGS (4)
  1. DUPIXENT [Suspect]
     Active Substance: DUPILUMAB
     Indication: Eczema
     Route: 058
     Dates: start: 202307, end: 202307
  2. DUPIXENT [Suspect]
     Active Substance: DUPILUMAB
     Indication: Dermatitis atopic
     Dosage: 300 MG, QOW
     Route: 058
     Dates: start: 2023, end: 202311
  3. DUPIXENT [Suspect]
     Active Substance: DUPILUMAB
     Dosage: 300 MG, QOW
     Route: 058
     Dates: start: 20240418
  4. DUPIXENT [Suspect]
     Active Substance: DUPILUMAB
     Dosage: 300 MG, Q3W
     Route: 058
     Dates: start: 202501

REACTIONS (15)
  - Loss of personal independence in daily activities [Not Recovered/Not Resolved]
  - Eyelid margin crusting [Not Recovered/Not Resolved]
  - Condition aggravated [Not Recovered/Not Resolved]
  - Pruritus [Recovering/Resolving]
  - Mood altered [Not Recovered/Not Resolved]
  - Sleep disorder [Not Recovered/Not Resolved]
  - Abscess drainage [Recovering/Resolving]
  - Lacrimation increased [Not Recovered/Not Resolved]
  - Eczema eyelids [Not Recovered/Not Resolved]
  - Eye allergy [Unknown]
  - Eczema [Not Recovered/Not Resolved]
  - Eye pruritus [Not Recovered/Not Resolved]
  - Drug hypersensitivity [Unknown]
  - Condition aggravated [Not Recovered/Not Resolved]
  - Off label use [Unknown]

NARRATIVE: CASE EVENT DATE: 20230101
